FAERS Safety Report 21147859 (Version 2)
Quarter: 2022Q3

REPORT INFORMATION
  Report Type: Spontaneous
  Country: US (occurrence: US)
  Receive Date: 20220729
  Receipt Date: 20220811
  Transmission Date: 20221027
  Serious: No
  Sender: FDA-Public Use
  Company Number: US-BAUSCH-BL-2022-018480

PATIENT
  Sex: Female

DRUGS (2)
  1. LATANOPROST [Suspect]
     Active Substance: LATANOPROST
     Indication: Glaucoma
     Dosage: 1 DROP IN EACH EYE AT BEDTIME BUT SOMETIMES PUTS MORE THAN 1 DROP
     Route: 047
     Dates: start: 202207, end: 202207
  2. LATANOPROST [Suspect]
     Active Substance: LATANOPROST
     Dosage: 1 DROP IN EACH EYE AT BEDTIME BUT SOMETIMES PUTS MORE THAN 1 DROP
     Route: 047
     Dates: start: 202207

REACTIONS (3)
  - Instillation site pain [Unknown]
  - Incorrect dose administered [Unknown]
  - Product quality issue [Unknown]

NARRATIVE: CASE EVENT DATE: 20220701
